FAERS Safety Report 16608436 (Version 1)
Quarter: 2019Q3

REPORT INFORMATION
  Report Type: Spontaneous
  Country: US (occurrence: US)
  Receive Date: 20190606
  Receipt Date: 20190606
  Transmission Date: 20191004
  Serious: No
  Sender: FDA-Public Use
  Company Number: None

PATIENT
  Age: 71 Year
  Sex: Male

DRUGS (1)
  1. TASIGNA [Suspect]
     Active Substance: NILOTINIB
     Route: 048
     Dates: start: 20190426

REACTIONS (5)
  - Weight decreased [None]
  - Nausea [None]
  - Blood glucose increased [None]
  - Saccadic eye movement [None]
  - Diarrhoea [None]

NARRATIVE: CASE EVENT DATE: 20190606
